FAERS Safety Report 6747041-7 (Version None)
Quarter: 2010Q2

REPORT INFORMATION
  Report Type: 
  Country: None (occurrence: None)
  Receive Date: 20100528
  Receipt Date: 20100521
  Transmission Date: 20101027
  Serious: Yes (Hospitalization)
  Sender: FDA-Public Use
  Company Number: PHHO2008US13012

PATIENT
  Sex: Male

DRUGS (2)
  1. CERTICAN [Suspect]
     Indication: RENAL TRANSPLANT
     Dosage: 0.75 BID
     Route: 048
     Dates: start: 20080620
  2. CERTICAN [Suspect]
     Dosage: 2.5 MG/DAY
     Route: 048

REACTIONS (6)
  - ABDOMINAL HERNIA [None]
  - ASPIRATION [None]
  - INCISIONAL HERNIA [None]
  - INCISIONAL HERNIA REPAIR [None]
  - POST PROCEDURAL DRAINAGE [None]
  - SEROMA [None]
